FAERS Safety Report 9441730 (Version 7)
Quarter: 2014Q4

REPORT INFORMATION
  Report Type: Spontaneous
  Country: BR (occurrence: BR)
  Receive Date: 20130806
  Receipt Date: 20141215
  Transmission Date: 20150529
  Serious: Yes (Other)
  Sender: FDA-Public Use
  Company Number: BR-PFIZER INC-2012071801

PATIENT
  Age: 66 Year
  Sex: Female
  Weight: 71 kg

DRUGS (10)
  1. ENALAPRIL [Concomitant]
     Active Substance: ENALAPRIL
     Indication: HYPERTENSION
     Dosage: 3 DF, DAILY AS NEEDED
  2. HYDROCHLOROTHIAZIDE. [Concomitant]
     Active Substance: HYDROCHLOROTHIAZIDE
     Indication: HYPERTENSION
     Dosage: UNK
  3. SUTENT [Suspect]
     Active Substance: SUNITINIB MALATE
     Dosage: 37.5 MG, CYCLE LASTING 10 DAYS
     Route: 048
     Dates: start: 2012, end: 2012
  4. CLOXAZOLAM [Concomitant]
     Active Substance: CLOXAZOLAM
     Indication: SLEEP DISORDER
     Dosage: 2 MG, UNK
  5. PURAN [Concomitant]
     Active Substance: LEVOTHYROXINE SODIUM
     Dosage: UNK, STRENGTH 50 UG
  6. LISINOPRIL. [Concomitant]
     Active Substance: LISINOPRIL
     Dosage: 10 MG, 1 TABLET IN THE MORNING
  7. AMLODIPINE [Concomitant]
     Active Substance: AMLODIPINE BESYLATE
     Indication: HYPERTENSION
     Dosage: 5 MG, AS NEEDED
  8. LYSINE [Concomitant]
     Active Substance: LYSINE
     Dosage: 10 MG, UNK
  9. SUTENT [Suspect]
     Active Substance: SUNITINIB MALATE
     Dosage: 25 MG, CYCLIC (14 DAYS ON AND 14 DAYS OFF)
     Route: 048
     Dates: end: 20141114
  10. SUTENT [Suspect]
     Active Substance: SUNITINIB MALATE
     Indication: RENAL CELL CARCINOMA
     Dosage: 50 MG, DAILY
     Route: 048
     Dates: start: 20120213

REACTIONS (34)
  - Disease progression [Not Recovered/Not Resolved]
  - Glossodynia [Recovered/Resolved]
  - Wound [Recovered/Resolved]
  - Musculoskeletal pain [Not Recovered/Not Resolved]
  - Blister [Recovered/Resolved]
  - Diarrhoea [Recovered/Resolved]
  - Nausea [Recovered/Resolved]
  - Mouth injury [Recovered/Resolved]
  - Oral pain [Recovered/Resolved]
  - Renal cell carcinoma [Not Recovered/Not Resolved]
  - Ageusia [Recovered/Resolved]
  - Arthralgia [Not Recovered/Not Resolved]
  - Blood pressure increased [Recovered/Resolved]
  - Nasal congestion [Recovered/Resolved]
  - Fatigue [Recovered/Resolved]
  - Oral discomfort [Recovered/Resolved]
  - Decreased appetite [Recovered/Resolved]
  - Retching [Recovered/Resolved]
  - Eyelid oedema [Recovered/Resolved]
  - Aphthous stomatitis [Unknown]
  - Rash [Recovered/Resolved]
  - Chromaturia [Recovered/Resolved]
  - Cough [Recovered/Resolved]
  - Feeling abnormal [Recovered/Resolved]
  - Fall [Recovered/Resolved]
  - Patella fracture [Recovered/Resolved]
  - Glossodynia [Recovered/Resolved]
  - Enlarged uvula [Recovered/Resolved]
  - Wound [Recovered/Resolved]
  - Headache [Recovered/Resolved]
  - Blood glucose increased [Recovered/Resolved]
  - Pain in extremity [Recovered/Resolved]
  - Pain in extremity [Not Recovered/Not Resolved]
  - Osteoporosis [Not Recovered/Not Resolved]

NARRATIVE: CASE EVENT DATE: 2012
